FAERS Safety Report 10482262 (Version 2)
Quarter: 2014Q3

REPORT INFORMATION
  Report Type: Report from Study
  Country: DE (occurrence: DE)
  Receive Date: 20140929
  Receipt Date: 20140929
  Transmission Date: 20150326
  Serious: Yes (Hospitalization)
  Sender: FDA-Public Use
  Company Number: DE-SA-2014SA058127

PATIENT
  Age: 62 Year
  Sex: Female

DRUGS (3)
  1. RAMILICH [Concomitant]
     Active Substance: RAMIPRIL
     Route: 048
     Dates: start: 2014
  2. METOPROLOL [Concomitant]
     Active Substance: METOPROLOL
     Indication: BLOOD PRESSURE INCREASED
     Route: 048
  3. AUBAGIO [Suspect]
     Active Substance: TERIFLUNOMIDE
     Indication: MULTIPLE SCLEROSIS
     Route: 048
     Dates: start: 20140411, end: 20140807

REACTIONS (15)
  - Rash [Not Recovered/Not Resolved]
  - Body temperature increased [Recovering/Resolving]
  - Decreased appetite [Recovering/Resolving]
  - Chills [Not Recovered/Not Resolved]
  - Pruritus [Recovering/Resolving]
  - Bronchitis [Recovering/Resolving]
  - Nausea [Recovering/Resolving]
  - Dermatitis [Not Recovered/Not Resolved]
  - Pyrexia [Not Recovered/Not Resolved]
  - Dizziness [Recovering/Resolving]
  - Dyspnoea [Recovered/Resolved]
  - Faeces soft [Unknown]
  - Influenza [Recovering/Resolving]
  - Decreased appetite [Unknown]
  - Nasopharyngitis [Recovering/Resolving]

NARRATIVE: CASE EVENT DATE: 201404
